FAERS Safety Report 23020281 (Version 1)
Quarter: 2023Q4

REPORT INFORMATION
  Report Type: Spontaneous
  Country: US (occurrence: US)
  Receive Date: 20231003
  Receipt Date: 20231003
  Transmission Date: 20240110
  Serious: Yes (Other)
  Sender: FDA-Public Use
  Company Number: US-UCBSA-2023047714

PATIENT
  Age: 3 Month
  Sex: Male
  Weight: 6 kg

DRUGS (89)
  1. KEPPRA [Suspect]
     Active Substance: LEVETIRACETAM
     Indication: Seizure
     Dosage: UNK
     Dates: start: 20220519, end: 20220614
  2. KEPPRA [Suspect]
     Active Substance: LEVETIRACETAM
     Dosage: UNK
     Dates: start: 20220614, end: 20220623
  3. KEPPRA [Suspect]
     Active Substance: LEVETIRACETAM
     Dosage: UNK
     Dates: start: 20220726, end: 20220728
  4. GLYCEROL PHENYLBUTYRATE [Suspect]
     Active Substance: GLYCEROL PHENYLBUTYRATE
     Indication: Urea cycle disorder
     Dosage: 2.1 MILLILITER
     Route: 048
     Dates: start: 20220412, end: 20220412
  5. GLYCEROL PHENYLBUTYRATE [Suspect]
     Active Substance: GLYCEROL PHENYLBUTYRATE
     Dosage: 2.8 MILLILITER
     Dates: start: 20220413, end: 20220417
  6. GLYCEROL PHENYLBUTYRATE [Suspect]
     Active Substance: GLYCEROL PHENYLBUTYRATE
     Dosage: 3.5 MILLILITER
     Route: 048
     Dates: start: 20220418, end: 20220418
  7. GLYCEROL PHENYLBUTYRATE [Suspect]
     Active Substance: GLYCEROL PHENYLBUTYRATE
     Dosage: 4.2 MILLILITER
     Route: 048
     Dates: start: 20220419, end: 20220419
  8. GLYCEROL PHENYLBUTYRATE [Suspect]
     Active Substance: GLYCEROL PHENYLBUTYRATE
     Dosage: 2.8 MILLILITER
     Route: 048
     Dates: start: 20220420, end: 20220424
  9. GLYCEROL PHENYLBUTYRATE [Suspect]
     Active Substance: GLYCEROL PHENYLBUTYRATE
     Dosage: 3.5 MILLILITER
     Route: 048
     Dates: start: 20220425, end: 20220426
  10. GLYCEROL PHENYLBUTYRATE [Suspect]
     Active Substance: GLYCEROL PHENYLBUTYRATE
     Dosage: 2.4 MILLILITER
     Route: 048
     Dates: start: 20220427, end: 20220518
  11. GLYCEROL PHENYLBUTYRATE [Suspect]
     Active Substance: GLYCEROL PHENYLBUTYRATE
     Dosage: 2.2 MILLILITER
     Route: 048
     Dates: start: 20220519, end: 20220601
  12. GLYCEROL PHENYLBUTYRATE [Suspect]
     Active Substance: GLYCEROL PHENYLBUTYRATE
     Dosage: 2.4 MILLILITER
     Route: 048
     Dates: start: 20220602, end: 20220620
  13. GLYCEROL PHENYLBUTYRATE [Suspect]
     Active Substance: GLYCEROL PHENYLBUTYRATE
     Dosage: 2.7 MILLILITER
     Dates: start: 20220621, end: 20220704
  14. GLYCEROL PHENYLBUTYRATE [Suspect]
     Active Substance: GLYCEROL PHENYLBUTYRATE
     Dosage: 3 MILLILITER
     Route: 048
     Dates: start: 20220705, end: 20220720
  15. GLYCEROL PHENYLBUTYRATE [Suspect]
     Active Substance: GLYCEROL PHENYLBUTYRATE
     Dosage: 3.3 MILLILITER
     Route: 048
     Dates: start: 20220721, end: 20220727
  16. FERROUS SULFATE [Concomitant]
     Active Substance: FERROUS SULFATE
     Indication: Iron deficiency
     Dosage: UNK
     Dates: start: 20220421, end: 20220429
  17. FERROUS SULFATE [Concomitant]
     Active Substance: FERROUS SULFATE
     Dosage: UNK
     Dates: start: 20220518, end: 20220606
  18. FERROUS SULFATE [Concomitant]
     Active Substance: FERROUS SULFATE
     Dosage: UNK
     Dates: start: 20220614, end: 20220623
  19. FERROUS SULFATE [Concomitant]
     Active Substance: FERROUS SULFATE
     Dosage: UNK
     Dates: start: 20220726, end: 20220728
  20. ATROPINE [Concomitant]
     Active Substance: ATROPINE
     Indication: Cardiac failure acute
     Dosage: UNK
     Dates: start: 20220413, end: 20220419
  21. CITRULLINE [Concomitant]
     Active Substance: CITRULLINE
     Indication: Ornithine transcarbamoylase deficiency
     Dosage: UNK
     Dates: start: 20220413, end: 20220414
  22. CITRULLINE [Concomitant]
     Active Substance: CITRULLINE
     Dosage: UNK
     Dates: start: 20220414, end: 20220420
  23. CITRULLINE [Concomitant]
     Active Substance: CITRULLINE
     Dosage: UNK
     Dates: start: 20220420, end: 20220420
  24. CITRULLINE [Concomitant]
     Active Substance: CITRULLINE
     Dosage: UNK
     Dates: start: 20220420, end: 20220425
  25. CITRULLINE [Concomitant]
     Active Substance: CITRULLINE
     Dosage: UNK
     Dates: start: 20220425, end: 20220426
  26. CITRULLINE [Concomitant]
     Active Substance: CITRULLINE
     Dosage: UNK
     Dates: start: 20220426, end: 20220429
  27. CITRULLINE [Concomitant]
     Active Substance: CITRULLINE
     Dosage: UNK
     Dates: start: 20220518, end: 20220609
  28. CITRULLINE [Concomitant]
     Active Substance: CITRULLINE
     Dosage: UNK
     Dates: start: 20220609, end: 20220617
  29. CITRULLINE [Concomitant]
     Active Substance: CITRULLINE
     Dosage: UNK
     Dates: start: 20220617, end: 20220623
  30. CITRULLINE [Concomitant]
     Active Substance: CITRULLINE
     Dosage: UNK
     Dates: start: 20220726, end: 20220728
  31. GLYCERIN [Concomitant]
     Active Substance: GLYCERIN
     Indication: Constipation
     Dosage: UNK
     Dates: start: 20220413, end: 20220427
  32. GLUCAGON [Concomitant]
     Active Substance: GLUCAGON\GLUCAGON HYDROCHLORIDE\WATER
     Indication: Hypoglycaemia
     Dosage: UNK
     Dates: start: 20220413, end: 20220415
  33. GLUCAGON [Concomitant]
     Active Substance: GLUCAGON\GLUCAGON HYDROCHLORIDE\WATER
     Dosage: UNK
     Dates: start: 20220726, end: 20220728
  34. ARGININE HCL [ARGININE HYDROCHLORIDE] [Concomitant]
     Indication: Hyperammonaemia
     Dosage: UNK
     Dates: start: 20220513, end: 20220515
  35. ARGININE HCL [ARGININE HYDROCHLORIDE] [Concomitant]
     Dosage: UNK
     Dates: start: 20220526, end: 20220527
  36. ARGININE HCL [ARGININE HYDROCHLORIDE] [Concomitant]
     Dosage: UNK
     Dates: start: 20220527, end: 20220529
  37. PROGLYCEM [Concomitant]
     Active Substance: DIAZOXIDE
     Indication: Hypoglycaemia
     Dosage: UNK
     Dates: start: 20220413, end: 20220415
  38. PROGLYCEM [Concomitant]
     Active Substance: DIAZOXIDE
     Dosage: UNK
     Dates: start: 20220415, end: 20220417
  39. PROGLYCEM [Concomitant]
     Active Substance: DIAZOXIDE
     Dosage: UNK
     Dates: start: 20220417, end: 20220429
  40. PROGLYCEM [Concomitant]
     Active Substance: DIAZOXIDE
     Dosage: UNK
     Dates: start: 20220518, end: 20220520
  41. PROGLYCEM [Concomitant]
     Active Substance: DIAZOXIDE
     Dosage: UNK
     Dates: start: 20220520, end: 20220523
  42. PROGLYCEM [Concomitant]
     Active Substance: DIAZOXIDE
     Dosage: UNK
     Dates: start: 20220523, end: 20220610
  43. PROGLYCEM [Concomitant]
     Active Substance: DIAZOXIDE
     Dosage: UNK
     Dates: start: 20220610, end: 20220616
  44. PROGLYCEM [Concomitant]
     Active Substance: DIAZOXIDE
     Dosage: UNK
     Dates: start: 20220616, end: 20220620
  45. PROGLYCEM [Concomitant]
     Active Substance: DIAZOXIDE
     Dosage: UNK
     Dates: start: 20220620, end: 20220623
  46. PROGLYCEM [Concomitant]
     Active Substance: DIAZOXIDE
     Dosage: UNK
     Dates: start: 20220726, end: 20220727
  47. PROGLYCEM [Concomitant]
     Active Substance: DIAZOXIDE
     Dosage: UNK
     Dates: start: 20220727, end: 20220728
  48. DIURIL [CHLOROTHIAZIDE] [Concomitant]
     Indication: Polyuria
     Dosage: UNK
     Dates: start: 20220413, end: 20220417
  49. DIURIL [CHLOROTHIAZIDE] [Concomitant]
     Dosage: UNK
     Dates: start: 20220417, end: 20220429
  50. DIURIL [CHLOROTHIAZIDE] [Concomitant]
     Dosage: UNK
     Dates: start: 20220518, end: 20220520
  51. DIURIL [CHLOROTHIAZIDE] [Concomitant]
     Dosage: UNK
     Dates: start: 20220520, end: 20220610
  52. DIURIL [CHLOROTHIAZIDE] [Concomitant]
     Dosage: UNK
     Dates: start: 20220610, end: 20220614
  53. DIURIL [CHLOROTHIAZIDE] [Concomitant]
     Dosage: UNK
     Dates: start: 20220616, end: 20220620
  54. DIURIL [CHLOROTHIAZIDE] [Concomitant]
     Dosage: UNK
     Dates: start: 20220726, end: 20220727
  55. DIURIL [CHLOROTHIAZIDE] [Concomitant]
     Dosage: UNK
     Dates: start: 20220727, end: 20220728
  56. DIURIL [CHLOROTHIAZIDE] [Concomitant]
     Dosage: UNK
     Dates: start: 20220614, end: 20220616
  57. DIURIL [CHLOROTHIAZIDE] [Concomitant]
     Dosage: UNK
     Dates: start: 20220620, end: 20220623
  58. AMMONUL [Concomitant]
     Active Substance: SODIUM BENZOATE\SODIUM PHENYLACETATE
     Indication: Hyperammonaemia
     Dosage: UNK
     Dates: start: 20220413, end: 20220416
  59. AMMONUL [Concomitant]
     Active Substance: SODIUM BENZOATE\SODIUM PHENYLACETATE
     Dosage: UNK
     Dates: start: 20220426, end: 20220426
  60. AMMONUL [Concomitant]
     Active Substance: SODIUM BENZOATE\SODIUM PHENYLACETATE
     Dosage: UNK
     Dates: start: 20220427, end: 20220427
  61. AMMONUL [Concomitant]
     Active Substance: SODIUM BENZOATE\SODIUM PHENYLACETATE
     Dosage: UNK
     Dates: start: 20220427, end: 20220427
  62. AMMONUL [Concomitant]
     Active Substance: SODIUM BENZOATE\SODIUM PHENYLACETATE
     Dosage: UNK
     Dates: start: 20220427, end: 20220428
  63. AMMONUL [Concomitant]
     Active Substance: SODIUM BENZOATE\SODIUM PHENYLACETATE
     Dosage: UNK
     Dates: start: 20220428, end: 20220429
  64. EPINEPHRINE [Concomitant]
     Active Substance: EPINEPHRINE
     Indication: Cardiac failure acute
     Dosage: UNK
     Dates: start: 20220413, end: 20220427
  65. PHENOBARBITAL [Concomitant]
     Active Substance: PHENOBARBITAL
     Indication: Seizure
     Dosage: UNK
     Dates: start: 20220413, end: 20220427
  66. PHENOBARBITAL [Concomitant]
     Active Substance: PHENOBARBITAL
     Dosage: UNK
     Dates: start: 20220428, end: 20220429
  67. PHENOBARBITAL [Concomitant]
     Active Substance: PHENOBARBITAL
     Dosage: UNK
     Dates: start: 20220518, end: 20220522
  68. PHENOBARBITAL [Concomitant]
     Active Substance: PHENOBARBITAL
     Dosage: UNK
     Dates: start: 20220522, end: 20220525
  69. PHENOBARBITAL [Concomitant]
     Active Substance: PHENOBARBITAL
     Dosage: UNK
     Dates: start: 20220526, end: 20220530
  70. HEPARIN [Concomitant]
     Active Substance: HEPARIN SODIUM
     Indication: Product used for unknown indication
     Dosage: UNK
     Dates: start: 20220413, end: 20220414
  71. HEPARIN [Concomitant]
     Active Substance: HEPARIN SODIUM
     Dosage: UNK
     Dates: start: 20220414, end: 20220417
  72. HEPARIN SODIUM [Concomitant]
     Active Substance: HEPARIN SODIUM
     Indication: Product used for unknown indication
     Dosage: UNK
     Dates: start: 20220413, end: 20220417
  73. HEPARIN SODIUM [Concomitant]
     Active Substance: HEPARIN SODIUM
     Dosage: UNK
     Dates: start: 20220417, end: 20220427
  74. HEPARIN SODIUM [Concomitant]
     Active Substance: HEPARIN SODIUM
     Dosage: UNK
     Dates: start: 20220519, end: 20220623
  75. HEPARIN SODIUM [Concomitant]
     Active Substance: HEPARIN SODIUM
     Dosage: UNK
     Dates: start: 20220726, end: 20220726
  76. HEPARIN SODIUM [Concomitant]
     Active Substance: HEPARIN SODIUM
     Dosage: UNK
     Dates: start: 20220727, end: 20220728
  77. SODIUM PHENYLACETATE [Concomitant]
     Active Substance: SODIUM PHENYLACETATE
     Indication: Hyperammonaemia
     Dosage: UNK
     Dates: start: 20220414, end: 20220416
  78. EPOETIN ALFA [Concomitant]
     Active Substance: ERYTHROPOIETIN
     Indication: Anaemia
     Dosage: UNK
     Dates: start: 20220415, end: 20220427
  79. EPOETIN ALFA [Concomitant]
     Active Substance: ERYTHROPOIETIN
     Dosage: UNK
     Dates: start: 20220429, end: 20220429
  80. EPOETIN ALFA [Concomitant]
     Active Substance: ERYTHROPOIETIN
     Dosage: UNK
     Dates: start: 20220518, end: 20220527
  81. EPOETIN ALFA [Concomitant]
     Active Substance: ERYTHROPOIETIN
     Dosage: UNK
     Dates: start: 20220527, end: 20220602
  82. EPOETIN ALFA [Concomitant]
     Active Substance: ERYTHROPOIETIN
     Dosage: UNK
     Dates: start: 20220602, end: 20220615
  83. EPOETIN ALFA [Concomitant]
     Active Substance: ERYTHROPOIETIN
     Dosage: UNK
     Dates: start: 20220615, end: 20220623
  84. EPOETIN ALFA [Concomitant]
     Active Substance: ERYTHROPOIETIN
     Dosage: UNK
     Dates: start: 20220726, end: 20220728
  85. LMX 4 [Concomitant]
     Indication: Pain
     Dosage: UNK
     Dates: start: 20220518, end: 20220610
  86. LMX 4 [Concomitant]
     Dosage: UNK
     Dates: start: 20220726, end: 20220728
  87. ZINC OXIDE [Concomitant]
     Active Substance: ZINC OXIDE
     Indication: Dermatitis diaper
     Dosage: UNK
     Dates: start: 20220519, end: 20220623
  88. ZINC OXIDE [Concomitant]
     Active Substance: ZINC OXIDE
     Dosage: UNK
     Dates: start: 20220726, end: 20220728
  89. BACITRACIN [Concomitant]
     Active Substance: BACITRACIN
     Indication: Product used for unknown indication
     Dosage: UNK
     Dates: start: 20220613, end: 20220623

REACTIONS (1)
  - Myelosuppression [Recovered/Resolved]

NARRATIVE: CASE EVENT DATE: 20220621
